FAERS Safety Report 4972677-3 (Version None)
Quarter: 2006Q1

REPORT INFORMATION
  Report Type: 
  Country: None (occurrence: None)
  Receive Date: 20060215
  Receipt Date: 20051118
  Transmission Date: 20060701
  Serious: Yes (Other)
  Sender: FDA-Public Use
  Company Number: US200511001638

PATIENT
  Sex: Male

DRUGS (2)
  1. CIALIS [Suspect]
     Indication: ERECTILE DYSFUNCTION
     Dosage: 20 MG ORAL
     Route: 048
     Dates: start: 20051116, end: 20051116
  2. COUMADIN [Concomitant]

REACTIONS (2)
  - AMNESIA [None]
  - CEREBROVASCULAR ACCIDENT [None]
